FAERS Safety Report 18485280 (Version 1)
Quarter: 2020Q4

REPORT INFORMATION
  Report Type: Spontaneous
  Country: US (occurrence: US)
  Receive Date: 20201109
  Receipt Date: 20201109
  Transmission Date: 20210114
  Serious: No
  Sender: FDA-Public Use
  Company Number: None

PATIENT
  Age: 44 Year
  Sex: Female
  Weight: 103.86 kg

DRUGS (13)
  1. MEMANTINE. [Concomitant]
     Active Substance: MEMANTINE
  2. METHOCARBAMOL. [Concomitant]
     Active Substance: METHOCARBAMOL
  3. CAPECITABINE. [Suspect]
     Active Substance: CAPECITABINE
     Indication: BREAST CANCER
     Dosage: ?          OTHER FREQUENCY:BID FOR 14/21 DAYS;?
     Route: 048
     Dates: start: 20200909
  4. LORAZEPAM. [Concomitant]
     Active Substance: LORAZEPAM
  5. NORCO [Concomitant]
     Active Substance: ACETAMINOPHEN\HYDROCODONE BITARTRATE
  6. ONDANSETRON [Concomitant]
     Active Substance: ONDANSETRON
  7. CYCLOBENZAPRINE. [Concomitant]
     Active Substance: CYCLOBENZAPRINE
  8. TUKYSA [Concomitant]
     Active Substance: TUCATINIB
  9. TRAMADOL. [Concomitant]
     Active Substance: TRAMADOL
  10. CARBINOXAMINE [Concomitant]
     Active Substance: CARBINOXAMINE
  11. METOPROLOL. [Concomitant]
     Active Substance: METOPROLOL
  12. PROMETHAZINE [Concomitant]
     Active Substance: PROMETHAZINE HYDROCHLORIDE
  13. VENLAFAZINE [Concomitant]

REACTIONS (2)
  - Blister [None]
  - Therapy interrupted [None]

NARRATIVE: CASE EVENT DATE: 20201109
